FAERS Safety Report 6415071-0 (Version None)
Quarter: 2009Q4

REPORT INFORMATION
  Report Type: 
  Country: None (occurrence: None)
  Receive Date: 20091021
  Receipt Date: 20091009
  Transmission Date: 20100525
  Serious: Yes (Hospitalization)
  Sender: FDA-Public Use
  Company Number: CLOF-10309

PATIENT
  Age: 6 Year
  Sex: Female
  Weight: 21.3 kg

DRUGS (20)
  1. CLOFARABINE (CLOFARABINE) [Suspect]
     Indication: ACUTE LYMPHOCYTIC LEUKAEMIA
     Dosage: 17 MG, QDX5, INTRAVENOUS
     Route: 042
     Dates: start: 20060720, end: 20060724
  2. CLOFARABINE (CLOFARABINE) [Suspect]
     Indication: LEUKAEMIA RECURRENT
     Dosage: 17 MG, QDX5, INTRAVENOUS
     Route: 042
     Dates: start: 20060720, end: 20060724
  3. ETOPOSIDE [Suspect]
     Indication: ACUTE LYMPHOCYTIC LEUKAEMIA
     Dosage: 63 MG, QDX5, INTRAVENOUS
     Route: 042
     Dates: start: 20060720, end: 20060724
  4. CYCLOPHOSPHAMIDE [Suspect]
     Indication: ACUTE LYMPHOCYTIC LEUKAEMIA
     Dosage: 375 MG, QDX5, INTRAVENOUS
     Route: 042
     Dates: start: 20060720, end: 20060724
  5. MORPHINE [Concomitant]
  6. DIPHENHYDRAMINE HCL [Concomitant]
  7. ACETAMINOPHEN [Concomitant]
  8. REGULAR INSULIN [Concomitant]
  9. FAMOTIDINE [Concomitant]
  10. FILGRASTIM (FILGRASTIM) [Concomitant]
  11. ESOMEPRAZOLE MAGNESIUM [Concomitant]
  12. TPN (PYRIDOXINE HYDROCHLORIDE, TYROSINE, NICOTINAMIDE) [Concomitant]
  13. SENNOSIDES [Concomitant]
  14. IMMUNE GLOBULIN (IMMUNOGLOBULIN) [Concomitant]
  15. LACTOBACILLUS (LACTOBACILLUS ACIDOPHILUS) [Concomitant]
  16. LORAZEPAM [Concomitant]
  17. TRIMETHOPRIM [Concomitant]
  18. ONDANSETRON [Concomitant]
  19. METOCLOPRAMIDE [Concomitant]
  20. SUCRALFATE [Concomitant]

REACTIONS (23)
  - ABDOMINAL PAIN [None]
  - ASCITES [None]
  - BK VIRUS INFECTION [None]
  - CHRONIC SINUSITIS [None]
  - COLITIS [None]
  - CYSTITIS HAEMORRHAGIC [None]
  - FIBRIN D DIMER INCREASED [None]
  - GENERALISED OEDEMA [None]
  - HEPATOSPLENOMEGALY [None]
  - HYPERGLYCAEMIA [None]
  - HYPOXIA [None]
  - KIDNEY ENLARGEMENT [None]
  - LIPASE INCREASED [None]
  - LIVER FUNCTION TEST ABNORMAL [None]
  - LYMPHADENOPATHY [None]
  - METABOLIC ACIDOSIS [None]
  - PERICARDIAL EFFUSION [None]
  - PLEURAL EFFUSION [None]
  - STAPHYLOCOCCAL BACTERAEMIA [None]
  - STREPTOCOCCAL BACTERAEMIA [None]
  - TACHYPNOEA [None]
  - VOMITING [None]
  - WAIST CIRCUMFERENCE INCREASED [None]
